FAERS Safety Report 18132936 (Version 1)
Quarter: 2020Q3

REPORT INFORMATION
  Report Type: Spontaneous
  Country: IT (occurrence: IT)
  Receive Date: 20200811
  Receipt Date: 20200811
  Transmission Date: 20201103
  Serious: Yes (Hospitalization)
  Sender: FDA-Public Use
  Company Number: IT-AUROBINDO-AUR-APL-2020-038503

PATIENT
  Age: 39 Year
  Sex: Female

DRUGS (1)
  1. ELETRIPTAN FILM COATED TABLETS [Suspect]
     Active Substance: ELETRIPTAN
     Indication: HEADACHE
     Dosage: UNK
     Route: 048
     Dates: start: 20200730, end: 20200730

REACTIONS (1)
  - Chest discomfort [Recovering/Resolving]

NARRATIVE: CASE EVENT DATE: 20200730
